FAERS Safety Report 24121186 (Version 2)
Quarter: 2024Q3

REPORT INFORMATION
  Report Type: Spontaneous
  Country: JP (occurrence: JP)
  Receive Date: 20240722
  Receipt Date: 20240730
  Transmission Date: 20241017
  Serious: Yes (Death)
  Sender: ARGENX BVBA
  Company Number: JP-ARGENX-2024-ARGX-JP005710

PATIENT

DRUGS (1)
  1. VYVGART [Suspect]
     Active Substance: EFGARTIGIMOD ALFA-FCAB
     Indication: Immune thrombocytopenia
     Dosage: UNK
     Route: 042
     Dates: start: 20240711

REACTIONS (1)
  - Death [Fatal]
